FAERS Safety Report 9726924 (Version 1)
Quarter: 2013Q4

REPORT INFORMATION
  Report Type: Spontaneous
  Country: FR (occurrence: FR)
  Receive Date: 20131203
  Receipt Date: 20131203
  Transmission Date: 20140711
  Serious: Yes (Death, Hospitalization)
  Sender: FDA-Public Use
  Company Number: FR-PFIZER INC-2013343514

PATIENT
  Age: 92 Year
  Sex: Male

DRUGS (7)
  1. AMIODARONE HCL [Suspect]
     Indication: ATRIAL TACHYCARDIA
     Dosage: 200 MG, DAILY ((5D/W))
     Route: 048
     Dates: start: 20130423, end: 20130517
  2. ZYLORIC [Concomitant]
     Dosage: UNK
  3. PAROXETINE [Concomitant]
     Dosage: UNK
  4. LYSANXIA [Concomitant]
     Dosage: UNK
  5. LASILIX FAIBLE [Concomitant]
     Dosage: UNK
  6. ALDACTONE [Concomitant]
     Dosage: UNK
  7. AUGMENTIN [Concomitant]
     Dosage: UNK
     Dates: start: 20130514, end: 20130516

REACTIONS (2)
  - Multi-organ failure [Fatal]
  - Acute hepatic failure [Not Recovered/Not Resolved]
